FAERS Safety Report 4823567-8 (Version None)
Quarter: 2005Q4

REPORT INFORMATION
  Report Type: 
  Country: None (occurrence: None)
  Receive Date: 20051031
  Receipt Date: 20051017
  Transmission Date: 20060501
  Serious: Yes (Other)
  Sender: FDA-Public Use
  Company Number: ITWYE060017OCT05

PATIENT
  Age: 18 Month
  Sex: Male

DRUGS (1)
  1. REFACTO [Suspect]
     Indication: FACTOR VIII DEFICIENCY
     Dosage: 40 UNIT/KG ON DEMAND, INTRAVENOUS
     Route: 042
     Dates: start: 20050801, end: 20050801

REACTIONS (1)
  - ANTI FACTOR VIII ANTIBODY POSITIVE [None]
